FAERS Safety Report 4864707-4 (Version None)
Quarter: 2005Q4

REPORT INFORMATION
  Report Type: 
  Country: None (occurrence: None)
  Receive Date: 20051222
  Receipt Date: 20050503
  Transmission Date: 20060501
  Serious: Yes (Hospitalization, Disabling)
  Sender: FDA-Public Use
  Company Number: US-MERCK-0505USA00506

PATIENT
  Age: 49 Year
  Sex: Male
  Weight: 97 kg

DRUGS (6)
  1. VIOXX [Suspect]
     Indication: ARTHRITIS
     Route: 048
     Dates: start: 20030116, end: 20030701
  2. VIOXX [Suspect]
     Route: 048
     Dates: start: 20030701, end: 20031001
  3. VIOXX [Suspect]
     Indication: TENDONITIS
     Route: 048
     Dates: start: 20030116, end: 20030701
  4. VIOXX [Suspect]
     Route: 048
     Dates: start: 20030701, end: 20031001
  5. TOPROL-XL [Concomitant]
     Route: 048
  6. ASPIRIN [Concomitant]
     Route: 065

REACTIONS (17)
  - ALCOHOLISM [None]
  - AORTIC VALVE INCOMPETENCE [None]
  - ATRIAL FIBRILLATION [None]
  - CARDIAC FAILURE CONGESTIVE [None]
  - CEREBROVASCULAR ACCIDENT [None]
  - CHEST DISCOMFORT [None]
  - DIZZINESS [None]
  - DYSPNOEA [None]
  - FALL [None]
  - GASTROOESOPHAGEAL REFLUX DISEASE [None]
  - HYPERHIDROSIS [None]
  - HYPERTRIGLYCERIDAEMIA [None]
  - INSOMNIA [None]
  - OSTEOARTHRITIS [None]
  - PALPITATIONS [None]
  - SUPRAVENTRICULAR TACHYCARDIA [None]
  - VENTRICULAR DYSFUNCTION [None]
